FAERS Safety Report 14843151 (Version 1)
Quarter: 2018Q2

REPORT INFORMATION
  Report Type: Spontaneous
  Country: DE (occurrence: DE)
  Receive Date: 20180503
  Receipt Date: 20180503
  Transmission Date: 20180711
  Serious: Yes (Hospitalization, Other)
  Sender: FDA-Public Use
  Company Number: PHHY2018DE060350

PATIENT
  Sex: Male

DRUGS (2)
  1. CELLCEPT [Concomitant]
     Active Substance: MYCOPHENOLATE MOFETIL\MYCOPHENOLATE MOFETIL HYDROCHLORIDE
     Indication: LIVER TRANSPLANT
     Dosage: UNK
     Route: 065
  2. SANDIMMUN OPTORAL [Suspect]
     Active Substance: CYCLOSPORINE
     Indication: LIVER TRANSPLANT
     Dosage: 45 MG, BID
     Route: 065
     Dates: start: 2002

REACTIONS (6)
  - Biliary anastomosis complication [Recovered/Resolved]
  - Bile duct stenosis [Recovered/Resolved]
  - Liver function test increased [Unknown]
  - Cholangitis chronic [Recovered/Resolved]
  - Total bile acids increased [Unknown]
  - Cholelithiasis [Recovered/Resolved]
